FAERS Safety Report 8770563 (Version 1)
Quarter: 2012Q4

REPORT INFORMATION
  Report Type: 
  Country: JP (occurrence: JP)
  Receive Date: 20120906
  Receipt Date: 20120906
  Transmission Date: 20130627
  Serious: Yes (Other)
  Sender: FDA-Public Use
  Company Number: JP-ALLERGAN-1212146US

PATIENT

DRUGS (1)
  1. BOTOX [Suspect]
     Indication: FACIAL SPASM
     Dosage: UNK UNK, single
     Route: 030

REACTIONS (3)
  - Lagophthalmos [Unknown]
  - VIIth nerve paralysis [Unknown]
  - Lacrimation increased [Unknown]
